FAERS Safety Report 22104283 (Version 3)
Quarter: 2023Q2

REPORT INFORMATION
  Report Type: Spontaneous
  Country: US (occurrence: US)
  Receive Date: 20230316
  Receipt Date: 20230405
  Transmission Date: 20230722
  Serious: No
  Sender: FDA-Public Use
  Company Number: US-SANOFI-01530342

PATIENT
  Age: 76 Year
  Sex: Female

DRUGS (1)
  1. TOUJEO [Suspect]
     Active Substance: INSULIN GLARGINE
     Indication: Diabetes mellitus
     Dosage: 18 U, QD ( HS)
     Route: 065
     Dates: start: 20230312

REACTIONS (2)
  - Blood glucose increased [Unknown]
  - Device defective [Unknown]

NARRATIVE: CASE EVENT DATE: 20230312
